FAERS Safety Report 7339701-4 (Version None)
Quarter: 2011Q1

REPORT INFORMATION
  Report Type: 
  Country: None (occurrence: None)
  Receive Date: 20110309
  Receipt Date: 20110303
  Transmission Date: 20110831
  Serious: Yes (Hospitalization)
  Sender: FDA-Public Use
  Company Number: DE-ELI_LILLY_AND_COMPANY-DE201103001430

PATIENT
  Sex: Female

DRUGS (1)
  1. LIPROLOG LISPRO [Suspect]
     Route: 058

REACTIONS (1)
  - BLOOD GLUCOSE INCREASED [None]
